FAERS Safety Report 10599241 (Version 4)
Quarter: 2015Q1

REPORT INFORMATION
  Report Type: Spontaneous
  Country: US (occurrence: US)
  Receive Date: 20141121
  Receipt Date: 20150114
  Transmission Date: 20150720
  Serious: Yes (Other)
  Sender: FDA-Public Use
  Company Number: US-PFIZER INC-2014315456

PATIENT
  Age: 56 Year
  Sex: Male
  Weight: 66 kg

DRUGS (3)
  1. CENTRUM SPECIALIST ENERGY [Suspect]
     Active Substance: VITAMINS
     Indication: VITAMIN SUPPLEMENTATION
     Dosage: ONE PILL, ONCE DAILY
     Dates: start: 201409, end: 201410
  2. XALATAN [Suspect]
     Active Substance: LATANOPROST
     Indication: OCULAR DISCOMFORT
     Dosage: ONE GTT, DAILY
  3. CENTRUM SPECIALIST ENERGY [Suspect]
     Active Substance: VITAMINS
     Dosage: UNK

REACTIONS (8)
  - Angina pectoris [Recovered/Resolved]
  - Product physical issue [Unknown]
  - Poor quality drug administered [Unknown]
  - Dizziness [Recovered/Resolved]
  - Discomfort [Unknown]
  - Nausea [Recovered/Resolved]
  - Suspected counterfeit product [Unknown]
  - Product physical consistency issue [Unknown]

NARRATIVE: CASE EVENT DATE: 201409
